FAERS Safety Report 7875525-7 (Version None)
Quarter: 2011Q4

REPORT INFORMATION
  Report Type: 
  Country: None (occurrence: None)
  Receive Date: 20111031
  Receipt Date: 20111027
  Transmission Date: 20120403
  Serious: Yes (Death, Other)
  Sender: FDA-Public Use
  Company Number: PHHY2011BR95334

PATIENT
  Sex: Female

DRUGS (2)
  1. EXELON [Suspect]
     Dosage: 18MG/10CM2, 1 PATCH A DAY
     Route: 062
  2. EXELON [Suspect]
     Dosage: 9MG/5CM2, 1 PATCH A DAY
     Route: 062

REACTIONS (1)
  - CARDIAC DISORDER [None]
